FAERS Safety Report 5151240-8 (Version None)
Quarter: 2006Q4

REPORT INFORMATION
  Report Type: 
  Country: None (occurrence: None)
  Receive Date: 20061113
  Receipt Date: 20061113
  Transmission Date: 20070319
  Serious: Yes (Other)
  Sender: FDA-Public Use
  Company Number: None

PATIENT
  Sex: Female
  Weight: 50.3493 kg

DRUGS (7)
  1. REMICADE [Suspect]
     Indication: RHEUMATOID ARTHRITIS
     Dosage: 300MG  0,6,10,18 WKS  IV
     Route: 042
     Dates: start: 20060424
  2. REMICADE [Suspect]
     Indication: RHEUMATOID ARTHRITIS
     Dosage: 300MG  0,6,10,18 WKS  IV
     Route: 042
     Dates: start: 20060605
  3. REMICADE [Suspect]
     Indication: RHEUMATOID ARTHRITIS
     Dosage: 300MG  0,6,10,18 WKS  IV
     Route: 042
     Dates: start: 20060703
  4. REMICADE [Suspect]
     Indication: RHEUMATOID ARTHRITIS
     Dosage: 300MG  0,6,10,18 WKS  IV
     Route: 042
     Dates: start: 20060829
  5. REMICADE [Suspect]
  6. REMICADE [Suspect]
  7. REMICADE [Suspect]

REACTIONS (1)
  - GUILLAIN-BARRE SYNDROME [None]
